FAERS Safety Report 23627110 (Version 2)
Quarter: 2024Q2

REPORT INFORMATION
  Report Type: Report from Study
  Country: US (occurrence: US)
  Receive Date: 20240313
  Receipt Date: 20240606
  Transmission Date: 20240716
  Serious: No
  Sender: FDA-Public Use
  Company Number: US-SPRINGWORKS THERAPEUTICS-SW-001289

PATIENT
  Age: 27 Year
  Sex: Female

DRUGS (1)
  1. NIROGACESTAT [Suspect]
     Active Substance: NIROGACESTAT
     Indication: Product used for unknown indication
     Dosage: 150 MILLIGRAM, BID
     Dates: start: 20240204

REACTIONS (4)
  - Acne [Unknown]
  - Hot flush [Not Recovered/Not Resolved]
  - Diarrhoea [Unknown]
  - Product dose omission in error [Recovered/Resolved]

NARRATIVE: CASE EVENT DATE: 20240204
